FAERS Safety Report 17651447 (Version 8)
Quarter: 2020Q3

REPORT INFORMATION
  Report Type: Report from Study
  Country: KR (occurrence: KR)
  Receive Date: 20200409
  Receipt Date: 20200911
  Transmission Date: 20201102
  Serious: Yes (Hospitalization, Other)
  Sender: FDA-Public Use
  Company Number: KR-AMGEN-KORNI2020053685

PATIENT
  Age: 52 Year
  Sex: Male
  Weight: 60.7 kg

DRUGS (17)
  1. CARFILZOMIB [Suspect]
     Active Substance: CARFILZOMIB
     Indication: PLASMA CELL MYELOMA
     Dosage: 20 MILLIGRAM/SQ. METER
     Route: 042
     Dates: start: 20200220
  2. DICAMAX?D [Concomitant]
     Active Substance: CALCIUM CARBONATE\CHOLECALCIFEROL
     Dosage: 1 UNK
     Dates: start: 20200114
  3. ULTRACET [Concomitant]
     Active Substance: ACETAMINOPHEN\TRAMADOL HYDROCHLORIDE
     Dosage: 1 UNK
     Dates: start: 20200208
  4. PANORIN [Concomitant]
     Dosage: 60 MILLIGRAM
     Dates: start: 20200214, end: 20200511
  5. LENALIDOMIDE [Suspect]
     Active Substance: LENALIDOMIDE
     Indication: PLASMA CELL MYELOMA
     Dosage: 100?175 MILLIGRAM
     Route: 065
     Dates: start: 20200220
  6. DULCOLAX (BISACODYL) [Concomitant]
     Active Substance: BISACODYL
     Dosage: 10 MILLIGRAM
     Dates: start: 20200220, end: 20200220
  7. ACYCLOVIR [ACICLOVIR] [Concomitant]
     Active Substance: ACYCLOVIR
     Dosage: 1 UNK
     Dates: start: 20200109
  8. IRCODON [Concomitant]
     Active Substance: OXYCODONE HYDROCHLORIDE
     Dosage: 5?40 MILLIGRAM
     Dates: start: 20200205, end: 20200225
  9. AROBEST [Concomitant]
     Dosage: 20 MILLIGRAM
     Dates: start: 20200117
  10. TAMIPOOL [Concomitant]
     Active Substance: VITAMINS
     Dosage: 1 UNK
     Dates: start: 20200204, end: 20200308
  11. KEROMIN [Concomitant]
     Dosage: 30 MILLIGRAM
     Dates: start: 20200219, end: 20200222
  12. CARFILZOMIB [Suspect]
     Active Substance: CARFILZOMIB
     Dosage: 46.4 MILLIGRAM
     Route: 042
  13. MAGNESIUM OXIDE. [Concomitant]
     Active Substance: MAGNESIUM OXIDE
     Dosage: 500 MILLIGRAM
     Dates: start: 20200119
  14. DEXAMETHASONE. [Concomitant]
     Active Substance: DEXAMETHASONE
     Indication: PLASMA CELL MYELOMA
     Dosage: 40 MILLIGRAM
     Dates: start: 20200220
  15. TARGIN [Concomitant]
     Active Substance: NALOXONE HYDROCHLORIDE\OXYCODONE HYDROCHLORIDE
     Dosage: 1 UNK
     Dates: start: 20200114, end: 20200304
  16. ASPIRIN. [Concomitant]
     Active Substance: ASPIRIN
     Dosage: 100 MILLIGRAM
     Dates: start: 20200109
  17. KETOTOP EL [Concomitant]
     Dosage: 30 MILLIGRAM
     Dates: start: 20200120, end: 20200610

REACTIONS (7)
  - Nausea [Recovered/Resolved]
  - Febrile neutropenia [Recovered/Resolved]
  - Platelet count decreased [Not Recovered/Not Resolved]
  - Neutrophil count decreased [Recovered/Resolved]
  - Neck mass [Unknown]
  - Pneumocystis jirovecii pneumonia [Recovered/Resolved]
  - Neutrophil count decreased [Recovered/Resolved]

NARRATIVE: CASE EVENT DATE: 20200222
